FAERS Safety Report 23937578 (Version 1)
Quarter: 2024Q2

REPORT INFORMATION
  Report Type: Spontaneous
  Country: ES (occurrence: ES)
  Receive Date: 20240604
  Receipt Date: 20240604
  Transmission Date: 20240715
  Serious: Yes (Hospitalization, Other)
  Sender: FDA-Public Use
  Company Number: ES-AEMPS-1494897

PATIENT
  Age: 89 Year
  Sex: Male

DRUGS (5)
  1. ATORVASTATIN [Suspect]
     Active Substance: ATORVASTATIN
     Indication: Hypercholesterolaemia
     Dosage: 80 MILLIGRAM, QD
     Route: 048
     Dates: start: 202304, end: 20230927
  2. ATORVASTATIN [Suspect]
     Active Substance: ATORVASTATIN
     Dosage: 0-0-1
     Route: 048
     Dates: start: 20231013, end: 20231117
  3. TOCILIZUMAB [Concomitant]
     Active Substance: TOCILIZUMAB
     Indication: Polymyalgia rheumatica
     Dosage: UNK
     Route: 065
     Dates: start: 202307, end: 20230818
  4. PREDNISONE [Concomitant]
     Active Substance: PREDNISONE
     Indication: Giant cell arteritis
     Dosage: 5 MILLIGRAM, QD
     Route: 048
     Dates: start: 20201016
  5. METHOTREXATE [Concomitant]
     Active Substance: METHOTREXATE
     Indication: Polymyalgia rheumatica
     Dosage: 12.5 MILLIGRAM, WEEKLY
     Route: 048
     Dates: start: 20220811, end: 20231017

REACTIONS (2)
  - Hepatitis cholestatic [Recovered/Resolved]
  - Myopathy [Recovered/Resolved]

NARRATIVE: CASE EVENT DATE: 20231115
